FAERS Safety Report 11068098 (Version 1)
Quarter: 2015Q2

REPORT INFORMATION
  Report Type: Spontaneous
  Country: ES (occurrence: ES)
  Receive Date: 20150427
  Receipt Date: 20150427
  Transmission Date: 20150821
  Serious: Yes (Hospitalization)
  Sender: FDA-Public Use
  Company Number: ES-NOVOPROD-446330

PATIENT
  Age: 67 Year
  Sex: Male

DRUGS (2)
  1. INSULATARD FLEXPEN [Suspect]
     Active Substance: INSULIN HUMAN
     Indication: PRODUCT USED FOR UNKNOWN INDICATION
     Dosage: 36 U, QD (20 UNITS IN THE MORNING AND 16 AT MIDDAY)
     Route: 058
     Dates: start: 20150226, end: 20150226
  2. ACTRAPID [Suspect]
     Active Substance: INSULIN HUMAN
     Indication: PRODUCT USED FOR UNKNOWN INDICATION
     Dosage: UNK (ACCORDING TO PREVIOUS TESTS IN THE 3 PRINCIPAL MEALS)
     Route: 058
     Dates: start: 20150226, end: 20150226

REACTIONS (3)
  - Incorrect dose administered [Recovered/Resolved]
  - Hypoglycaemia [Recovered/Resolved]
  - Hypotension [Recovered/Resolved]

NARRATIVE: CASE EVENT DATE: 20150226
